FAERS Safety Report 20828697 (Version 1)
Quarter: 2022Q2

REPORT INFORMATION
  Report Type: Spontaneous
  Country: US (occurrence: US)
  Receive Date: 20220513
  Receipt Date: 20220513
  Transmission Date: 20220721
  Serious: No
  Sender: FDA-Public Use
  Company Number: US-INCYTE CORPORATION-2022IN004479

PATIENT

DRUGS (1)
  1. JAKAFI [Suspect]
     Active Substance: RUXOLITINIB
     Indication: Polycythaemia vera
     Dosage: 12.5 MILLIGRAM, BID
     Route: 048
     Dates: start: 202202

REACTIONS (3)
  - Mental status changes [Unknown]
  - General physical health deterioration [Unknown]
  - Skin lesion [Unknown]
